FAERS Safety Report 7233088-3 (Version None)
Quarter: 2011Q1

REPORT INFORMATION
  Report Type: 
  Country: None (occurrence: None)
  Receive Date: 20110119
  Receipt Date: 20110111
  Transmission Date: 20110831
  Serious: Yes (Other)
  Sender: FDA-Public Use
  Company Number: AU-PFIZER INC-2011006346

PATIENT
  Age: 30 Year
  Sex: Female

DRUGS (3)
  1. EFFEXOR XR [Suspect]
     Dosage: UNK
  2. LAMICTAL [Concomitant]
     Dosage: UNK
  3. EFFEXOR XR [Suspect]
     Dosage: 300 MG DAILY
     Dates: end: 20101115

REACTIONS (2)
  - ABORTION SPONTANEOUS [None]
  - HORMONE LEVEL ABNORMAL [None]
